FAERS Safety Report 6635154-X (Version None)
Quarter: 2010Q1

REPORT INFORMATION
  Report Type: 
  Country: None (occurrence: None)
  Receive Date: 20100315
  Receipt Date: 20100309
  Transmission Date: 20100710
  Serious: Yes (Life-Threatening, Hospitalization)
  Sender: FDA-Public Use
  Company Number: PHHY2010AT09163

PATIENT
  Sex: Female
  Weight: 74 kg

DRUGS (6)
  1. ACLASTA [Suspect]
     Indication: OSTEOPOROSIS
     Dosage: 5 MG, UNK
     Route: 042
     Dates: start: 20100111
  2. ANTICOAGULANTS [Concomitant]
     Indication: ATRIAL FLUTTER
  3. ARIMIDEX [Concomitant]
     Indication: ATRIAL FLUTTER
  4. LANITOP [Concomitant]
     Indication: ATRIAL FLUTTER
     Dosage: 0.1 MG, UNK
  5. SPIROBENE [Concomitant]
     Indication: ATRIAL FLUTTER
     Dosage: 50 MG 1X1 EVERY SECOND DAY
  6. ISOPTIN [Concomitant]
     Indication: ATRIAL FLUTTER
     Dosage: 120 MG, UNK

REACTIONS (26)
  - ACTIVATED PARTIAL THROMBOPLASTIN TIME PROLONGED [None]
  - APHASIA [None]
  - ASTHENIA [None]
  - BALANCE DISORDER [None]
  - BLOOD CHOLESTEROL INCREASED [None]
  - BLOOD FIBRINOGEN INCREASED [None]
  - BLOOD GLUCOSE INCREASED [None]
  - BLOOD PHOSPHORUS DECREASED [None]
  - BLOOD POTASSIUM DECREASED [None]
  - BLOOD PRESSURE INCREASED [None]
  - C-REACTIVE PROTEIN INCREASED [None]
  - CEREBRAL INFARCTION [None]
  - CEREBROVASCULAR ACCIDENT [None]
  - DIZZINESS [None]
  - DYSARTHRIA [None]
  - FALL [None]
  - GAIT DISTURBANCE [None]
  - GAMMA-GLUTAMYLTRANSFERASE INCREASED [None]
  - HEADACHE [None]
  - HIGH DENSITY LIPOPROTEIN DECREASED [None]
  - LYMPHOCYTE COUNT DECREASED [None]
  - MOTOR DYSFUNCTION [None]
  - NEUTROPHIL COUNT INCREASED [None]
  - RED BLOOD CELL SEDIMENTATION RATE INCREASED [None]
  - SENSORY LOSS [None]
  - SPEECH DISORDER [None]
